FAERS Safety Report 7428980-0 (Version None)
Quarter: 2011Q2

REPORT INFORMATION
  Report Type: 
  Country: None (occurrence: None)
  Receive Date: 20110412
  Receipt Date: 20110328
  Transmission Date: 20111010
  Serious: Yes (Hospitalization)
  Sender: FDA-Public Use
  Company Number: CIP11000797

PATIENT
  Age: 60 Year
  Sex: Female
  Weight: 70 kg

DRUGS (4)
  1. LIVIAL [Concomitant]
  2. ACTONEL [Suspect]
     Indication: OSTEOARTHRITIS
     Dosage: 35 MG, ONCE A WEEK, ORAL
     Route: 048
     Dates: start: 20010101, end: 20110101
  3. NAPROXEN [Concomitant]
  4. ACETAMINOPHEN [Concomitant]

REACTIONS (2)
  - HEPATIC PAIN [None]
  - HEPATITIS [None]
